FAERS Safety Report 5345882-4 (Version None)
Quarter: 2007Q2

REPORT INFORMATION
  Report Type: 
  Country: None (occurrence: None)
  Receive Date: 20070426
  Receipt Date: 20061128
  Transmission Date: 20071010
  Serious: Yes (Death)
  Sender: FDA-Public Use
  Company Number: US-JNJFOC-20061102280

PATIENT
  Age: 88 Year
  Sex: Female
  Weight: 54.4316 kg

DRUGS (5)
  1. RAZADYNE [Suspect]
     Indication: DEMENTIA ALZHEIMER'S TYPE
     Dosage: , 1 IN 1 DAY, ORAL
     Route: 048
     Dates: start: 20040101, end: 20061027
  2. TOPROL-XL [Concomitant]
  3. NAMENDA [Concomitant]
  4. PRAVACHOL [Concomitant]
  5. BABY ASPIRIN (ACETYSALICYLIC ACID) TABLET [Concomitant]

REACTIONS (1)
  - MYOCARDIAL INFARCTION [None]
